FAERS Safety Report 11695792 (Version 1)
Quarter: 2015Q4

REPORT INFORMATION
  Report Type: Report from Study
  Country: PH (occurrence: PH)
  Receive Date: 20151104
  Receipt Date: 20151104
  Transmission Date: 20160304
  Serious: Yes (Hospitalization, Other)
  Sender: FDA-Public Use
  Company Number: PHHY2015PH140038

PATIENT
  Age: 26 Year
  Sex: Female

DRUGS (2)
  1. TASIGNA [Suspect]
     Active Substance: NILOTINIB
     Indication: CHRONIC MYELOID LEUKAEMIA
     Dosage: 400 MG, QD
     Route: 048
     Dates: start: 201109, end: 201209
  2. TASIGNA [Suspect]
     Active Substance: NILOTINIB
     Dosage: 800 MG, QD
     Route: 048
     Dates: start: 201507

REACTIONS (4)
  - Deafness [Unknown]
  - Blindness [Unknown]
  - Chronic myeloid leukaemia [Unknown]
  - Drug resistance [Unknown]

NARRATIVE: CASE EVENT DATE: 201507
